FAERS Safety Report 9500550 (Version 1)
Quarter: 2013Q1

REPORT INFORMATION
  Report Type: Spontaneous
  Country: US (occurrence: None)
  Receive Date: 20130107
  Receipt Date: 20130107
  Transmission Date: 20140127
  Serious: Yes (Other)
  Sender: FDA-Public Use
  Company Number: PHEH2012US019751

PATIENT
  Age: 49 Year
  Sex: Female
  Weight: 68.9 kg

DRUGS (1)
  1. GILENYA [Suspect]
     Indication: MULTIPLE SCLEROSIS
     Route: 048
     Dates: start: 20120913, end: 20121001

REACTIONS (2)
  - Viral infection [None]
  - Immune system disorder [None]
